FAERS Safety Report 9373200 (Version 2)
Quarter: 2013Q3

REPORT INFORMATION
  Report Type: Spontaneous
  Country: US (occurrence: US)
  Receive Date: 20130627
  Receipt Date: 20130709
  Transmission Date: 20140515
  Serious: Yes (Death, Hospitalization)
  Sender: FDA-Public Use
  Company Number: US-PFIZER INC-AUR-APL-2010-02873

PATIENT
  Age: 60 Year
  Sex: Female

DRUGS (3)
  1. METOPROLOL TARTRATE [Suspect]
     Dosage: UNK
     Route: 048
  2. AMLODIPINE BESILATE [Suspect]
     Dosage: UNK
     Route: 048
  3. NAPROXEN [Suspect]
     Dosage: FREQUENCY : TOTAL,40 DF, UNK
     Route: 048

REACTIONS (2)
  - Overdose [Fatal]
  - Hypotension [Recovering/Resolving]
